FAERS Safety Report 5946700-3 (Version None)
Quarter: 2008Q4

REPORT INFORMATION
  Report Type: 
  Country: None (occurrence: None)
  Receive Date: 20081110
  Receipt Date: 20080919
  Transmission Date: 20090506
  Serious: No
  Sender: FDA-Public Use
  Company Number: A0748402A

PATIENT

DRUGS (2)
  1. ALTABAX [Suspect]
     Indication: BIOPSY
     Route: 061
  2. NO CONCURRENT MEDICATION [Concomitant]

REACTIONS (4)
  - BURNING SENSATION [None]
  - HYPERSENSITIVITY [None]
  - PRURITUS [None]
  - SWELLING [None]
